FAERS Safety Report 7646955-3 (Version None)
Quarter: 2011Q3

REPORT INFORMATION
  Report Type: 
  Country: None (occurrence: None)
  Receive Date: 20110801
  Receipt Date: 20110725
  Transmission Date: 20111222
  Serious: Yes (Life-Threatening, Hospitalization)
  Sender: FDA-Public Use
  Company Number: US-BAYER-2011-013544

PATIENT
  Age: 33 Year
  Sex: Female
  Weight: 68.027 kg

DRUGS (16)
  1. NORTRIPTYLINE HCL [Concomitant]
     Dosage: UNK
     Dates: start: 20030101, end: 20070101
  2. LEXAPRO [Concomitant]
     Indication: HORMONE LEVEL ABNORMAL
  3. EFFEXOR [Concomitant]
     Indication: DEPRESSION
  4. LASIX [Concomitant]
     Indication: OEDEMA
     Dosage: UNK
     Dates: start: 20061006
  5. EFFEXOR [Concomitant]
     Indication: MIGRAINE
     Dosage: 375 MG, QD
     Dates: start: 20080101
  6. TOPAMAX [Concomitant]
     Dosage: 25 MG, UNK
  7. POTASSIUM CHLORIDE W/SODIUM CHLORIDE [Concomitant]
     Dosage: UNK
     Dates: start: 20061006
  8. YASMIN [Suspect]
     Indication: PRODUCT USED FOR UNKNOWN INDICATION
     Route: 048
     Dates: start: 20061101
  9. ASCORBIC ACID [Concomitant]
  10. LEVOTHYROXINE SODIUM [Concomitant]
     Indication: HYPOTHYROIDISM
     Dosage: 00125 MG, UNK
     Route: 048
     Dates: start: 19930101
  11. LAMOTRIGINE [Concomitant]
     Indication: MIGRAINE
  12. SINGULAIR [Concomitant]
  13. IMITREX [Concomitant]
     Indication: MIGRAINE
     Dosage: UNK
     Dates: start: 19920101
  14. ROPINIROLE [Concomitant]
     Indication: RESTLESS LEGS SYNDROME
  15. ALBUTEROL SULFATE AUTOHALER [Concomitant]
     Indication: ASTHMA
     Dosage: UNK
     Dates: start: 20050101
  16. LEXAPRO [Concomitant]
     Indication: MIGRAINE

REACTIONS (7)
  - DEEP VEIN THROMBOSIS [None]
  - VISUAL ACUITY REDUCED [None]
  - PAIN IN EXTREMITY [None]
  - PAIN [None]
  - ANXIETY [None]
  - OEDEMA [None]
  - FEAR [None]
